FAERS Safety Report 7417117-X (Version None)
Quarter: 2011Q2

REPORT INFORMATION
  Report Type: 
  Country: None (occurrence: None)
  Receive Date: 20110415
  Receipt Date: 20110404
  Transmission Date: 20111010
  Serious: Yes (Hospitalization)
  Sender: FDA-Public Use
  Company Number: JP-JNJFOC-20101005462

PATIENT
  Sex: Male

DRUGS (51)
  1. NICARPINE [Suspect]
     Indication: ILL-DEFINED DISORDER
     Route: 041
  2. LACTIC ACID [Suspect]
     Indication: PRODUCT USED FOR UNKNOWN INDICATION
     Route: 048
  3. RISPERDAL [Suspect]
     Indication: ILL-DEFINED DISORDER
     Route: 048
  4. CEFAZOLIN [Suspect]
     Indication: ILL-DEFINED DISORDER
     Route: 041
  5. TAKEPRON [Suspect]
     Indication: ILL-DEFINED DISORDER
     Route: 048
  6. CALONAL [Suspect]
     Indication: PYREXIA
     Route: 048
  7. MIDAZOLAM [Suspect]
     Indication: ILL-DEFINED DISORDER
     Route: 041
  8. MORPHINE [Suspect]
     Indication: ILL-DEFINED DISORDER
     Route: 041
  9. ANHIBA [Suspect]
     Indication: ILL-DEFINED DISORDER
     Route: 054
  10. RINGERS SOLUTION [Suspect]
     Route: 048
  11. DEXMEDETOMIDINE HYDROCHLORIDE [Suspect]
     Indication: ILL-DEFINED DISORDER
     Route: 041
  12. HYALEIN [Suspect]
     Indication: ILL-DEFINED DISORDER
     Route: 047
  13. GASTER [Suspect]
     Indication: ILL-DEFINED DISORDER
     Route: 048
  14. EPINEPHRINE [Suspect]
     Indication: ILL-DEFINED DISORDER
     Route: 041
  15. CALCICOL [Suspect]
     Indication: ILL-DEFINED DISORDER
     Route: 041
  16. XYLOCAINE [Suspect]
     Indication: ILL-DEFINED DISORDER
     Route: 041
  17. ATARAX [Suspect]
     Indication: ILL-DEFINED DISORDER
     Route: 041
  18. DORMICUM [Suspect]
     Indication: ILL-DEFINED DISORDER
     Route: 041
  19. ATROPINE SULPHATE [Suspect]
     Indication: ILL-DEFINED DISORDER
     Route: 041
  20. DIAZEPAM [Suspect]
     Route: 048
  21. RINGERS SOLUTION [Suspect]
     Indication: PRODUCT USED FOR UNKNOWN INDICATION
     Route: 048
  22. OMEPRAL [Suspect]
     Indication: ILL-DEFINED DISORDER
     Route: 041
  23. FLURBIPROFEN [Suspect]
     Indication: ILL-DEFINED DISORDER
     Route: 041
  24. FENTANYL CITRATE [Suspect]
     Indication: ILL-DEFINED DISORDER
     Route: 041
  25. LAXOBERON [Suspect]
     Indication: ILL-DEFINED DISORDER
     Route: 048
  26. DECADRON [Suspect]
     Indication: ILL-DEFINED DISORDER
     Route: 041
  27. ULTIVA [Suspect]
     Indication: ILL-DEFINED DISORDER
     Route: 041
  28. PANTOL INJ. [Suspect]
     Indication: ILL-DEFINED DISORDER
     Route: 041
  29. DEXAMETHASONE SODIUM PHOSPHATE [Suspect]
     Indication: PRODUCT USED FOR UNKNOWN INDICATION
     Route: 041
  30. NICARDIPINE HYDROCHLORIDE [Suspect]
     Indication: ILL-DEFINED DISORDER
     Route: 041
  31. BIOFERMIN R [Concomitant]
     Indication: ILL-DEFINED DISORDER
     Route: 048
  32. ROCEPHIN [Suspect]
     Indication: INFECTION
     Route: 041
  33. DEPAS [Suspect]
     Indication: ILL-DEFINED DISORDER
     Route: 048
  34. HEPARIN SODIUM [Suspect]
     Route: 041
  35. PIPERACILLIN SODIUM [Suspect]
     Indication: ILL-DEFINED DISORDER
     Route: 041
  36. OFLOXACIN [Concomitant]
     Indication: ILL-DEFINED DISORDER
     Route: 047
  37. GASTER [Suspect]
     Route: 041
  38. LASIX [Suspect]
     Indication: ILL-DEFINED DISORDER
     Route: 048
  39. ALDACTONE [Suspect]
     Indication: ILL-DEFINED DISORDER
     Route: 048
  40. LACTOBACILLUS [Suspect]
     Indication: ILL-DEFINED DISORDER
     Route: 048
  41. HEPARIN SODIUM [Suspect]
     Indication: ILL-DEFINED DISORDER
     Route: 041
  42. PRECEDEX [Suspect]
     Indication: ILL-DEFINED DISORDER
     Route: 041
  43. AMPICILLIN [Suspect]
     Indication: ILL-DEFINED DISORDER
     Route: 041
  44. CLINDAMYCIN PHOSPHATE [Suspect]
     Indication: ILL-DEFINED DISORDER
     Route: 041
  45. PHENOBAL [Suspect]
     Indication: ILL-DEFINED DISORDER
     Route: 048
  46. DIAZEPAM [Suspect]
     Indication: ILL-DEFINED DISORDER
     Route: 048
  47. BIOFERMIN [Suspect]
     Indication: ILL-DEFINED DISORDER
     Route: 048
  48. TRICLORYL [Suspect]
     Indication: ILL-DEFINED DISORDER
     Route: 048
  49. ROCURONIUM BROMIDE [Suspect]
     Indication: ILL-DEFINED DISORDER
     Route: 041
  50. GLYCERINE [Suspect]
     Indication: CONSTIPATION
     Route: 054
  51. GLYCEOL [Suspect]
     Indication: ILL-DEFINED DISORDER
     Route: 041

REACTIONS (1)
  - DRUG RASH WITH EOSINOPHILIA AND SYSTEMIC SYMPTOMS [None]
